FAERS Safety Report 10060401 (Version 1)
Quarter: 2014Q2

REPORT INFORMATION
  Report Type: Report from Study
  Country: CO (occurrence: CO)
  Receive Date: 20140404
  Receipt Date: 20140404
  Transmission Date: 20141212
  Serious: Yes (Other)
  Sender: FDA-Public Use
  Company Number: CO-ABBVIE-14P-036-1221710-00

PATIENT
  Age: 19 Year
  Sex: Male
  Weight: 84 kg

DRUGS (1)
  1. HUMIRA [Suspect]
     Indication: ANKYLOSING SPONDYLITIS
     Route: 058
     Dates: start: 20090511, end: 20140313

REACTIONS (2)
  - Scrotal pain [Recovering/Resolving]
  - Scrotal cyst [Recovering/Resolving]
